FAERS Safety Report 4269642-0 (Version None)
Quarter: 2004Q1

REPORT INFORMATION
  Report Type: 
  Country: None (occurrence: None)
  Receive Date: 20040112
  Receipt Date: 20031230
  Transmission Date: 20041129
  Serious: Yes (Hospitalization)
  Sender: FDA-Public Use
  Company Number: 03P-008-0246013-00

PATIENT
  Sex: Female

DRUGS (9)
  1. VALPROATE SODIUM [Suspect]
     Indication: CONVULSION
     Dosage: 2 GM  (THERAPY DATES:  MANY YEARS -    );  DECREASED TO 500 MG EVERY 4 DAYS
     Dates: start: 20031201
  2. VALPROATE SODIUM [Suspect]
     Indication: DEPRESSION
     Dosage: 2 GM  (THERAPY DATES:  MANY YEARS -    );  DECREASED TO 500 MG EVERY 4 DAYS
     Dates: start: 20031201
  3. VALPROATE SODIUM [Suspect]
     Indication: OBSESSIVE-COMPULSIVE DISORDER
     Dosage: 2 GM  (THERAPY DATES:  MANY YEARS -    );  DECREASED TO 500 MG EVERY 4 DAYS
     Dates: start: 20031201
  4. AMISULPRIDE [Suspect]
     Indication: DEPRESSION
  5. AMISULPRIDE [Suspect]
     Indication: OBSESSIVE-COMPULSIVE DISORDER
  6. AMISULPRIDE [Suspect]
     Indication: SCHIZOAFFECTIVE DISORDER
  7. LITHIUM CARBONATE [Concomitant]
  8. NSAID'S [Concomitant]
  9. ANTIDEPRESSANTS [Concomitant]

REACTIONS (11)
  - AMMONIA INCREASED [None]
  - CONFUSIONAL STATE [None]
  - DELIRIUM [None]
  - DEPRESSION [None]
  - DRUG WITHDRAWAL SYNDROME [None]
  - INSOMNIA [None]
  - MEMORY IMPAIRMENT [None]
  - MENTAL IMPAIRMENT [None]
  - SOMNOLENCE [None]
  - TARDIVE DYSKINESIA [None]
  - TREMOR [None]
